FAERS Safety Report 9208728 (Version 1)
Quarter: 2013Q1

REPORT INFORMATION
  Report Type: Spontaneous
  Country: JP (occurrence: None)
  Receive Date: 20130227
  Receipt Date: 20130227
  Transmission Date: 20140127
  Serious: Yes (Hospitalization)
  Sender: FDA-Public Use
  Company Number: TCI2013A01027

PATIENT
  Age: 66 Year
  Sex: Male

DRUGS (4)
  1. ACTOS (PIOGLITAZONE HYDROCHLORIDE) [Suspect]
     Route: 048
  2. LANTUS (INSULIN GLARGINE) [Suspect]
  3. HUMALOG (INSULIN LISPRO) [Suspect]
  4. LIPITOR(ATORVASTATIN CALCIUM) [Concomitant]

REACTIONS (2)
  - Hypoglycaemia [None]
  - Ketoacidosis [None]
